FAERS Safety Report 22017617 (Version 1)
Quarter: 2023Q1

REPORT INFORMATION
  Report Type: Spontaneous
  Country: FR (occurrence: FR)
  Receive Date: 20230221
  Receipt Date: 20230221
  Transmission Date: 20230417
  Serious: Yes (Hospitalization)
  Sender: FDA-Public Use
  Company Number: FR-MERIDIAN MEDICAL TECHNOLOGIES, LLC-2023MMT00005

PATIENT
  Age: 20 Year
  Sex: Female

DRUGS (1)
  1. ATROPINE [Suspect]
     Active Substance: ATROPINE
     Indication: Keratitis
     Dosage: 1 GTT, 2X/DAY

REACTIONS (1)
  - Anticholinergic syndrome [Recovered/Resolved]
